FAERS Safety Report 9520689 (Version 1)
Quarter: 2013Q3

REPORT INFORMATION
  Report Type: Spontaneous
  Country: CA (occurrence: CA)
  Receive Date: 20130913
  Receipt Date: 20130913
  Transmission Date: 20140515
  Serious: Yes (Other)
  Sender: FDA-Public Use
  Company Number: CA-ASTRAZENECA-2013SE68431

PATIENT
  Age: 67 Year
  Sex: Female

DRUGS (7)
  1. ARIMIDEX [Suspect]
     Route: 048
  2. AROMASIN [Suspect]
     Route: 042
  3. ZOMETA [Suspect]
     Route: 042
  4. PAMIDRONATE DISODIUM [Concomitant]
  5. PREDNISONE [Concomitant]
  6. VINORELBINE TARTRATE [Concomitant]
  7. XELODA [Concomitant]

REACTIONS (6)
  - Breast cancer [Unknown]
  - Dysarthria [Unknown]
  - Metastases to bone [Unknown]
  - Metastases to liver [Unknown]
  - Neoplasm progression [Unknown]
  - Pulmonary mass [Unknown]
